FAERS Safety Report 15183801 (Version 1)
Quarter: 2018Q3

REPORT INFORMATION
  Report Type: Spontaneous
  Country: US (occurrence: US)
  Receive Date: 20180625
  Receipt Date: 20180625
  Transmission Date: 20181010
  Serious: Yes (Disabling, Other)
  Sender: FDA-Public Use
  Company Number: None

PATIENT
  Age: 15 Year
  Sex: Male
  Weight: 54 kg

DRUGS (5)
  1. MYORISAN [Suspect]
     Active Substance: ISOTRETINOIN
     Indication: ACNE CYSTIC
     Dosage: ?          QUANTITY:2 CAPSULE(S);?
     Route: 048
     Dates: start: 20180101, end: 20180501
  2. ADVIL [Concomitant]
     Active Substance: IBUPROFEN
  3. ALLEGRA [Concomitant]
     Active Substance: FEXOFENADINE HYDROCHLORIDE
  4. VITAMIN D [Concomitant]
     Active Substance: CHOLECALCIFEROL
  5. CHILDREN^S CHEWABLE VIT [Concomitant]

REACTIONS (4)
  - Therapy change [None]
  - Growth failure [None]
  - Bone development abnormal [None]
  - Drug ineffective [None]

NARRATIVE: CASE EVENT DATE: 20180401
